FAERS Safety Report 21734454 (Version 1)
Quarter: 2022Q4

REPORT INFORMATION
  Report Type: Spontaneous
  Country: DK (occurrence: DK)
  Receive Date: 20221215
  Receipt Date: 20221215
  Transmission Date: 20230112
  Serious: Yes (Other)
  Sender: FDA-Public Use
  Company Number: None

PATIENT
  Age: 53 Year

DRUGS (5)
  1. PACLITAXEL [Suspect]
     Active Substance: PACLITAXEL
     Indication: Breast cancer
     Dosage: DOSAGE: 150 MG. ?STRENGTH: UNKNOWN.
     Dates: start: 20181109
  2. EPIRUBICIN [Suspect]
     Active Substance: EPIRUBICIN
     Indication: Breast cancer
     Dosage: STRENGTH: UNKNOWN. ?DOSAGE: REDUCED DOSE (75%), ORIGINAL DOSAGE 170 MG
     Dates: start: 20181212, end: 20190103
  3. EPIRUBICIN [Suspect]
     Active Substance: EPIRUBICIN
     Dosage: STRENGTH: UNKNOWN. ?DOSAGE: 170 MG.
     Dates: start: 20180831, end: 20181015
  4. CYCLOPHOSPHAMIDE [Suspect]
     Active Substance: CYCLOPHOSPHAMIDE
     Indication: Breast cancer
     Dosage: DOSAGE: REDUCED DOSE (75%), ORIGINAL DOSAGE 1100 MG   ?STRENGTH: UNKNOWN.
     Dates: start: 20181212, end: 20190103
  5. CYCLOPHOSPHAMIDE [Suspect]
     Active Substance: CYCLOPHOSPHAMIDE
     Dosage: DOSAGE: 1100 MG. ?STRENGTH: UNKNOWN.
     Dates: start: 20180831, end: 20181015

REACTIONS (5)
  - Dizziness [None]
  - Headache [None]
  - Aphasia [None]
  - Brain injury [Not Recovered/Not Resolved]
  - Fatigue [Not Recovered/Not Resolved]

NARRATIVE: CASE EVENT DATE: 20190101
